FAERS Safety Report 10168953 (Version 2)
Quarter: 2014Q2

REPORT INFORMATION
  Report Type: Spontaneous
  Country: US (occurrence: US)
  Receive Date: 20140513
  Receipt Date: 20140604
  Transmission Date: 20141212
  Serious: No
  Sender: FDA-Public Use
  Company Number: US-PFIZER INC-2014129500

PATIENT
  Age: 44 Year
  Sex: Female
  Weight: 74.83 kg

DRUGS (2)
  1. VENLAFAXINE HCL [Suspect]
     Indication: DEPRESSION
     Dosage: 225 MG, DAILY
     Dates: start: 201404
  2. METOPROLOL [Concomitant]
     Indication: HYPERTENSION
     Dosage: 200 MG, DAILY

REACTIONS (1)
  - Drug ineffective [Unknown]
